FAERS Safety Report 13902014 (Version 1)
Quarter: 2017Q3

REPORT INFORMATION
  Report Type: Spontaneous
  Country: US (occurrence: US)
  Receive Date: 20170824
  Receipt Date: 20170824
  Transmission Date: 20171127
  Serious: No
  Sender: FDA-Public Use
  Company Number: US-ROCHE-1131512

PATIENT
  Sex: Female

DRUGS (5)
  1. ANZEMET [Concomitant]
     Active Substance: DOLASETRON MESYLATE
  2. DECADRON [Concomitant]
     Active Substance: DEXAMETHASONE
  3. HERCEPTIN [Suspect]
     Active Substance: TRASTUZUMAB
     Indication: BREAST CANCER
     Route: 065
  4. HEPARIN FLUSH [Concomitant]
     Active Substance: HEPARIN SODIUM
  5. NAVELBINE [Concomitant]
     Active Substance: VINORELBINE TARTRATE

REACTIONS (1)
  - Asthenia [Unknown]
